FAERS Safety Report 9419401 (Version 1)
Quarter: 2013Q3

REPORT INFORMATION
  Report Type: Spontaneous
  Country: US (occurrence: None)
  Receive Date: 20130724
  Receipt Date: 20130724
  Transmission Date: 20140515
  Serious: Yes (Other)
  Sender: FDA-Public Use
  Company Number: None

PATIENT
  Age: 68 Year
  Sex: Male

DRUGS (2)
  1. OMEPRAZOLE [Suspect]
     Indication: GASTROOESOPHAGEAL REFLUX DISEASE
     Dates: start: 20110910, end: 20111026
  2. TESTOSTERONE [Suspect]
     Dates: start: 20110122, end: 20111026

REACTIONS (9)
  - Drug-induced liver injury [None]
  - Hepatitis [None]
  - Cough [None]
  - Dyspnoea [None]
  - Lung infiltration [None]
  - Dyspepsia [None]
  - Lipase increased [None]
  - Diffuse large B-cell lymphoma [None]
  - Rectal haemorrhage [None]
